FAERS Safety Report 26202718 (Version 1)
Quarter: 2025Q4

REPORT INFORMATION
  Report Type: Spontaneous
  Country: JP (occurrence: JP)
  Receive Date: 20251226
  Receipt Date: 20251226
  Transmission Date: 20260118
  Serious: Yes (Other)
  Sender: ROCHE
  Company Number: JP-ROCHE-10000468955

PATIENT
  Age: 81 Year
  Sex: Male

DRUGS (3)
  1. RITUXAN [Suspect]
     Active Substance: RITUXIMAB
     Indication: Polymyositis
     Route: 041
  2. METHYLPREDNISOLONE [Suspect]
     Active Substance: METHYLPREDNISOLONE
     Indication: Polymyositis
  3. TACROLIMUS [Suspect]
     Active Substance: TACROLIMUS
     Indication: Polymyositis

REACTIONS (2)
  - Off label use [Unknown]
  - Pneumatosis intestinalis [Unknown]
